FAERS Safety Report 14806100 (Version 2)
Quarter: 2018Q2

REPORT INFORMATION
  Report Type: Spontaneous
  Country: US (occurrence: US)
  Receive Date: 20180425
  Receipt Date: 20180501
  Transmission Date: 20180711
  Serious: Yes (Hospitalization, Other)
  Sender: FDA-Public Use
  Company Number: US-SA-2018SA109764

PATIENT
  Age: 55 Year
  Sex: Male

DRUGS (7)
  1. ETOMIDATE. [Concomitant]
     Active Substance: ETOMIDATE
     Route: 042
  2. SUCCINYLCHOLINE CHLORIDE. [Concomitant]
     Active Substance: SUCCINYLCHOLINE CHLORIDE
     Route: 042
  3. PANTOPRAZOLE [Concomitant]
     Active Substance: PANTOPRAZOLE
  4. LIDOCAINE HYDROCHLORIDE. [Suspect]
     Active Substance: LIDOCAINE HYDROCHLORIDE
     Indication: ENDOTRACHEAL INTUBATION
     Dosage: TOPICAL ENDOBRONCHIAL, GEL APPLIED WITH TONGUE BLADE
     Route: 061
  5. ALLOPURINOL. [Concomitant]
     Active Substance: ALLOPURINOL
  6. ACYCLOVIR. [Concomitant]
     Active Substance: ACYCLOVIR
  7. FLUCONAZOLE. [Concomitant]
     Active Substance: FLUCONAZOLE

REACTIONS (3)
  - Condition aggravated [Recovered/Resolved]
  - Hypoxia [Recovered/Resolved]
  - Methaemoglobinaemia [Recovered/Resolved]
